FAERS Safety Report 5100122-6 (Version None)
Quarter: 2006Q3

REPORT INFORMATION
  Report Type: 
  Country: None (occurrence: None)
  Receive Date: 20060802
  Receipt Date: 20060501
  Transmission Date: 20061208
  Serious: Yes (Hospitalization)
  Sender: FDA-Public Use
  Company Number: US-JNJFOC-20060500449

PATIENT
  Age: 17 Year
  Sex: Female

DRUGS (5)
  1. EXTRA STRENGTH TYLENOL [Suspect]
     Indication: SUICIDE ATTEMPT
     Dosage: 25000 MG, 1 IN 1 DAY, ORAL
     Route: 048
     Dates: start: 20060117
  2. ACCUTANE [Suspect]
     Indication: ACNE CYSTIC
     Dosage: SEE IMAGE
     Route: 048
     Dates: end: 20060412
  3. ACCUTANE [Suspect]
     Indication: ACNE CYSTIC
     Dosage: SEE IMAGE
     Route: 048
     Dates: start: 20060117
  4. ZOLOFT [Concomitant]
  5. BIRTH CONTROL PILLS (ORAL CONTRACEPTIVE NOS) [Concomitant]

REACTIONS (1)
  - INTENTIONAL OVERDOSE [None]
